FAERS Safety Report 8170281-X (Version None)
Quarter: 2012Q1

REPORT INFORMATION
  Report Type: 
  Country: None (occurrence: None)
  Receive Date: 20120228
  Receipt Date: 20120223
  Transmission Date: 20120608
  Serious: Yes (Hospitalization)
  Sender: FDA-Public Use
  Company Number: PHEH2012US004520

PATIENT
  Age: 48 Year
  Sex: Female
  Weight: 95.238 kg

DRUGS (13)
  1. VERELAN [Concomitant]
     Dosage: 200 MG, UNK
  2. ASPIRIN [Concomitant]
     Dosage: 81 MG, UNK
  3. CALCIUM-D-SANDOZ [Concomitant]
  4. TEKTURNA [Suspect]
     Indication: HYPERTENSION
     Dosage: 1 DF, QD
     Route: 048
     Dates: start: 20111109, end: 20111216
  5. LIPITOR [Concomitant]
     Dosage: 20 MG, UNK
  6. NIACIN [Concomitant]
     Dosage: 500 MG, UNK
  7. METFORMIN HCL [Concomitant]
     Dosage: 500 MG, UNK
  8. COMBIVENT [Concomitant]
     Dosage: 90-18 MCG, UNK
  9. COLCHICINA [Concomitant]
  10. ALLEGRA-D 12 HOUR [Concomitant]
  11. MICARDIS [Concomitant]
     Dosage: 80 MG, UNK
  12. STARLIX [Concomitant]
     Dosage: 60 MG, UNK
  13. SINGULAIR [Concomitant]
     Dosage: 10 MG, UNK

REACTIONS (1)
  - CEREBROVASCULAR ACCIDENT [None]
